FAERS Safety Report 7014290-2 (Version None)
Quarter: 2010Q3

REPORT INFORMATION
  Report Type: 
  Country: None (occurrence: None)
  Receive Date: 20100927
  Receipt Date: 20100920
  Transmission Date: 20110219
  Serious: Yes (Other)
  Sender: FDA-Public Use
  Company Number: US-US-EMD SERONO, INC.-7018305

PATIENT
  Sex: Female

DRUGS (1)
  1. REBIF [Suspect]
     Indication: PRODUCT USED FOR UNKNOWN INDICATION
     Route: 058
     Dates: start: 20060919

REACTIONS (5)
  - ARTHRITIS [None]
  - BLADDER DISORDER [None]
  - FEELING HOT [None]
  - PALMAR ERYTHEMA [None]
  - SYSTEMIC LUPUS ERYTHEMATOSUS [None]
